FAERS Safety Report 7161260-X (Version None)
Quarter: 2010Q4

REPORT INFORMATION
  Report Type: 
  Country: None (occurrence: None)
  Receive Date: 20101210
  Receipt Date: 20101210
  Transmission Date: 20110411
  Serious: Yes (Life-Threatening)
  Sender: FDA-Public Use
  Company Number: None

PATIENT
  Age: 30 Year
  Sex: Female
  Weight: 88.4514 kg

DRUGS (1)
  1. MIRENA [Suspect]
     Indication: CONTRACEPTION
     Dosage: IUD 5 YR VAG
     Route: 067
     Dates: start: 20080912, end: 20101210

REACTIONS (27)
  - AFFECTIVE DISORDER [None]
  - ASTHENIA [None]
  - BACK PAIN [None]
  - BURNING SENSATION [None]
  - CHILLS [None]
  - CONFUSIONAL STATE [None]
  - CRYING [None]
  - DECREASED APPETITE [None]
  - DEPRESSION [None]
  - DISCOMFORT [None]
  - EMOTIONAL DISORDER [None]
  - FEELING ABNORMAL [None]
  - GENITAL PAIN [None]
  - HAIR GROWTH ABNORMAL [None]
  - HEADACHE [None]
  - HYPOAESTHESIA [None]
  - MEMORY IMPAIRMENT [None]
  - MENSTRUAL DISORDER [None]
  - MOOD SWINGS [None]
  - MUSCULOSKELETAL PAIN [None]
  - NAUSEA [None]
  - NECK PAIN [None]
  - PYREXIA [None]
  - RECTAL HAEMORRHAGE [None]
  - SWELLING [None]
  - VISUAL IMPAIRMENT [None]
  - VOMITING [None]
